FAERS Safety Report 16730977 (Version 1)
Quarter: 2019Q3

REPORT INFORMATION
  Report Type: Spontaneous
  Country: HU (occurrence: HU)
  Receive Date: 20190822
  Receipt Date: 20190822
  Transmission Date: 20191005
  Serious: Yes (Hospitalization, Other)
  Sender: FDA-Public Use
  Company Number: HU-MYLANLABS-2019M1078083

PATIENT
  Age: 64 Year
  Sex: Female

DRUGS (5)
  1. IMATINIB. [Suspect]
     Active Substance: IMATINIB MESYLATE
     Indication: CHRONIC MYELOID LEUKAEMIA
     Dosage: 400 MG, QD
     Route: 065
     Dates: start: 20130210
  2. L-THYROXIN                         /00068001/ [Concomitant]
     Active Substance: LEVOTHYROXINE
     Indication: PRODUCT USED FOR UNKNOWN INDICATION
     Dosage: 25 UG, QD
     Route: 065
     Dates: start: 201712
  3. BOSUTINIB [Suspect]
     Active Substance: BOSUTINIB
     Indication: PRODUCT USED FOR UNKNOWN INDICATION
     Dosage: 500 MG, UNK
     Route: 065
     Dates: start: 20170405
  4. BOSUTINIB [Suspect]
     Active Substance: BOSUTINIB
     Dosage: 500 MG, QD
     Route: 065
     Dates: start: 20170706
  5. BOSUTINIB [Suspect]
     Active Substance: BOSUTINIB
     Dosage: 400 MG, QD
     Route: 065
     Dates: start: 20170419, end: 20170706

REACTIONS (10)
  - Empty sella syndrome [Unknown]
  - Autoimmune thyroiditis [Unknown]
  - Obesity [Unknown]
  - Diarrhoea [Recovered/Resolved]
  - Hyperthyroidism [Unknown]
  - Blood thyroid stimulating hormone increased [Unknown]
  - Hypothyroidism [Unknown]
  - Thyroxine decreased [Unknown]
  - Cytogenetic analysis abnormal [Unknown]
  - Pneumonia [Unknown]

NARRATIVE: CASE EVENT DATE: 201303
